FAERS Safety Report 8238468-5 (Version None)
Quarter: 2012Q1

REPORT INFORMATION
  Report Type: 
  Country: None (occurrence: None)
  Receive Date: 20120327
  Receipt Date: 20120223
  Transmission Date: 20120608
  Serious: Yes (Life-Threatening, Other)
  Sender: FDA-Public Use
  Company Number: US-ROCHE-GNE294152

PATIENT
  Sex: Female

DRUGS (10)
  1. OMALIZUMAB [Suspect]
     Indication: ASTHMA
     Dosage: 1 INJECTION, 1/MONTH
     Route: 058
     Dates: start: 20090921
  2. CETIRIZINE [Concomitant]
     Indication: HYPERSENSITIVITY
  3. SINGULAIR [Concomitant]
     Indication: PRODUCT USED FOR UNKNOWN INDICATION
  4. LEVOXYL [Concomitant]
  5. SYNTHROID [Concomitant]
     Indication: PRODUCT USED FOR UNKNOWN INDICATION
  6. OMALIZUMAB [Suspect]
     Route: 058
     Dates: start: 20120217
  7. CETIRIZINE HCL [Concomitant]
     Indication: PRODUCT USED FOR UNKNOWN INDICATION
  8. PROVENTIL [Concomitant]
     Indication: PRODUCT USED FOR UNKNOWN INDICATION
  9. ADVAIR DISKUS 100/50 [Concomitant]
     Indication: PRODUCT USED FOR UNKNOWN INDICATION
  10. PRAVASTATIN [Concomitant]
     Indication: BLOOD CHOLESTEROL INCREASED

REACTIONS (2)
  - THROAT TIGHTNESS [None]
  - HEADACHE [None]
